FAERS Safety Report 6523757-2 (Version None)
Quarter: 2009Q4

REPORT INFORMATION
  Report Type: 
  Country: None (occurrence: None)
  Receive Date: 20091231
  Receipt Date: 20091221
  Transmission Date: 20100525
  Serious: Yes (Other)
  Sender: FDA-Public Use
  Company Number: US-PFIZER INC-2009314731

PATIENT
  Sex: Male
  Weight: 113.38 kg

DRUGS (5)
  1. LIPITOR [Suspect]
     Indication: CORONARY ARTERY BYPASS
     Dosage: 10 MG, 1X/DAY
     Route: 048
  2. WARFARIN [Concomitant]
     Dosage: 3 MG, UNK
     Route: 048
  3. TOPROL-XL [Concomitant]
     Dosage: 25 MG, UNK
     Route: 048
  4. DRONEDARONE [Concomitant]
     Dosage: 400 MG, 2X/DAY
     Route: 048
  5. ACETYLSALICYLIC ACID [Concomitant]
     Dosage: 81 MG, UNK
     Route: 048

REACTIONS (2)
  - FALL [None]
  - TENDON RUPTURE [None]
